FAERS Safety Report 12633582 (Version 1)
Quarter: 2016Q3

REPORT INFORMATION
  Report Type: Spontaneous
  Country: FR (occurrence: FR)
  Receive Date: 20160809
  Receipt Date: 20160809
  Transmission Date: 20161109
  Serious: Yes (Hospitalization)
  Sender: FDA-Public Use
  Company Number: FR-PFIZER INC-2014278077

PATIENT
  Age: 68 Year
  Sex: Male

DRUGS (14)
  1. KARDEGIC [Concomitant]
     Active Substance: ASPIRIN LYSINE
  2. ZOLPIDEM [Concomitant]
     Active Substance: ZOLPIDEM\ZOLPIDEM TARTRATE
  3. EUPANTOL [Concomitant]
     Active Substance: PANTOPRAZOLE SODIUM
  4. PERIKABIVEN [Suspect]
     Active Substance: ALANINE\ARGININE\ASPARTIC ACID\CALCIUM CHLORIDE\DEXTROSE MONOHYDRATE\GLUTAMIC ACID\GLYCINE\HISTIDINE\ISOLEUCINE\LEUCINE\LYSINE HYDROCHLORIDE\MAGNESIUM SULFATE HEPTAHYDRATE\METHIONINE\PHENYLALANINE\POTASSIUM CHLORIDE\PROLINE\SERINE\SODIUM ACETATE\SODIUM GLYCEROPHOSPHATE ANHYDROUS\SOYBEAN OIL\THREONIN
     Dosage: UNK
     Route: 042
     Dates: start: 20140807
  5. SEROPLEX [Concomitant]
     Active Substance: ESCITALOPRAM OXALATE
  6. VANCOMYCIN [Suspect]
     Active Substance: VANCOMYCIN
     Dosage: UNK
     Route: 047
     Dates: start: 20140901, end: 20140914
  7. FRAGMINE [Suspect]
     Active Substance: DALTEPARIN SODIUM
     Dosage: UNK
     Route: 058
     Dates: start: 20140906
  8. ZIAGEN [Concomitant]
     Active Substance: ABACAVIR SULFATE
     Dosage: UNK
     Route: 048
     Dates: start: 20140807
  9. EMTRIVA [Concomitant]
     Active Substance: EMTRICITABINE
     Dosage: UNK
     Route: 048
     Dates: start: 20140807
  10. CRESTOR [Concomitant]
     Active Substance: ROSUVASTATIN CALCIUM
  11. VANCOMYCIN HCL [Suspect]
     Active Substance: VANCOMYCIN HYDROCHLORIDE
     Dosage: 2 G, DAILY
     Route: 042
     Dates: start: 20140910, end: 20140915
  12. TICARCILLIN [Suspect]
     Active Substance: TICARCILLIN
     Dosage: UNK
     Route: 047
     Dates: start: 20140901, end: 20140914
  13. REYATAZ [Concomitant]
     Active Substance: ATAZANAVIR SULFATE
     Dosage: UNK
     Route: 048
     Dates: start: 20140807
  14. FORLAX [Concomitant]
     Active Substance: POLYETHYLENE GLYCOL 4000

REACTIONS (1)
  - Stevens-Johnson syndrome [Unknown]

NARRATIVE: CASE EVENT DATE: 20140912
